FAERS Safety Report 12889094 (Version 4)
Quarter: 2017Q1

REPORT INFORMATION
  Report Type: Report from Study
  Country: US (occurrence: US)
  Receive Date: 20161027
  Receipt Date: 20170322
  Transmission Date: 20170428
  Serious: Yes (Death, Other)
  Sender: FDA-Public Use
  Company Number: US-PFIZER INC-2016494996

PATIENT
  Age: 5 Decade
  Sex: Male

DRUGS (5)
  1. HELIUM. [Suspect]
     Active Substance: HELIUM
     Indication: COMPLETED SUICIDE
     Dosage: UNK
     Route: 048
  2. ALPRAZOLAM. [Suspect]
     Active Substance: ALPRAZOLAM
     Indication: INSOMNIA
     Dosage: 5 MG, UNK
  3. FLONASE [Concomitant]
     Active Substance: FLUTICASONE PROPIONATE
     Dosage: UNK
  4. ATORVASTATIN CALCIUM. [Suspect]
     Active Substance: ATORVASTATIN CALCIUM
     Indication: HYPERLIPIDAEMIA
     Dosage: 10 MG, DAILY
  5. ZOLPIDEM TARTRATE. [Suspect]
     Active Substance: ZOLPIDEM TARTRATE
     Indication: INSOMNIA
     Dosage: 5 MG, UNK

REACTIONS (12)
  - Asphyxia [Fatal]
  - Hypoacusis [Unknown]
  - Completed suicide [Fatal]
  - Aggression [Unknown]
  - Amnesia [Unknown]
  - Myalgia [Unknown]
  - Eczema [Unknown]
  - Depression [Unknown]
  - Abnormal behaviour [Unknown]
  - Irritability [Unknown]
  - Personality change [Unknown]
  - Paranoia [Unknown]
